FAERS Safety Report 15747315 (Version 2)
Quarter: 2019Q1

REPORT INFORMATION
  Report Type: Spontaneous
  Country: US (occurrence: US)
  Receive Date: 20181220
  Receipt Date: 20190318
  Transmission Date: 20190417
  Serious: No
  Sender: FDA-Public Use
  Company Number: US-AVADEL SPECIALTY PHARMACEUTICALS, LLC-2018AVA00499

PATIENT
  Age: 65 Year
  Sex: Male
  Weight: 89.8 kg

DRUGS (1)
  1. NOCTIVA [Suspect]
     Active Substance: DESMOPRESSIN ACETATE
     Indication: NOCTURIA
     Dosage: 0.83 ?G, 1X/DAY 30 MINUTES BEFORE BEDTIME
     Route: 045
     Dates: start: 201811, end: 201811

REACTIONS (6)
  - Drug ineffective [Recovered/Resolved]
  - Rhinorrhoea [Recovered/Resolved]
  - Insomnia [Recovered/Resolved]
  - Sinus congestion [Recovered/Resolved]
  - Malabsorption from administration site [Recovered/Resolved]
  - Nasal congestion [Recovered/Resolved]

NARRATIVE: CASE EVENT DATE: 201811
